FAERS Safety Report 10989153 (Version 2)
Quarter: 2015Q2

REPORT INFORMATION
  Report Type: Report from Study
  Country: CA (occurrence: CA)
  Receive Date: 20150406
  Receipt Date: 20150420
  Transmission Date: 20150821
  Serious: Yes (Hospitalization, Other)
  Sender: FDA-Public Use
  Company Number: CA-AMGEN-CANSL2015031252

PATIENT
  Age: 69 Year
  Sex: Male

DRUGS (7)
  1. RAMIPRIL. [Concomitant]
     Active Substance: RAMIPRIL
     Dosage: 2.5 MG, PER DAY
  2. ENBREL [Suspect]
     Active Substance: ETANERCEPT
     Indication: PSORIASIS
     Dosage: 50 MG, 2 TIMES/WK
     Route: 065
     Dates: start: 20110228
  3. ASA [Concomitant]
     Active Substance: ASPIRIN
     Dosage: 81 MG, PER DAY
  4. TEVA ROSUVASTATIN [Concomitant]
     Dosage: 20 MG, QD
  5. METOPROLOL                         /00376903/ [Concomitant]
     Dosage: 25 MG, BID
  6. TECTA [Concomitant]
     Active Substance: PANTOPRAZOLE MAGNESIUM
     Dosage: 40 MG, QD
  7. MORPHINE [Suspect]
     Active Substance: MORPHINE
     Indication: KIDNEY CONTUSION
     Dosage: UNK
     Route: 065

REACTIONS (14)
  - Arthralgia [Not Recovered/Not Resolved]
  - Kidney contusion [Unknown]
  - Joint crepitation [Unknown]
  - Psoriasis [Recovering/Resolving]
  - Adverse drug reaction [Unknown]
  - Knee arthroplasty [Recovered/Resolved]
  - Accident [Unknown]
  - Sleep disorder [Unknown]
  - Decreased appetite [Recovered/Resolved]
  - Myocardial infarction [Unknown]
  - Arthropathy [Unknown]
  - Joint swelling [Unknown]
  - Weight decreased [Recovered/Resolved]
  - Eye pruritus [Unknown]

NARRATIVE: CASE EVENT DATE: 2013
